FAERS Safety Report 9168909 (Version 1)
Quarter: 2013Q1

REPORT INFORMATION
  Report Type: Report from Study
  Country: CA (occurrence: CA)
  Receive Date: 20130318
  Receipt Date: 20130318
  Transmission Date: 20140127
  Serious: Yes (Hospitalization)
  Sender: FDA-Public Use
  Company Number: CA-JNJFOC-20130306293

PATIENT
  Age: 50 Year
  Sex: Female
  Weight: 57 kg

DRUGS (5)
  1. REMICADE [Suspect]
     Indication: CROHN^S DISEASE
     Dosage: 6TH DOSE OF INFLIXIMAB
     Route: 042
     Dates: start: 20120919
  2. REMICADE [Suspect]
     Indication: CROHN^S DISEASE
     Dosage: 1ST DOSE OF INFLIXIMAB
     Route: 042
     Dates: start: 20120223
  3. ZOLOFT [Concomitant]
     Route: 065
  4. IMURAN [Concomitant]
     Route: 065
  5. TECTA [Concomitant]
     Route: 065

REACTIONS (1)
  - Intestinal resection [Recovering/Resolving]
